FAERS Safety Report 5374755-6 (Version None)
Quarter: 2007Q2

REPORT INFORMATION
  Report Type: 
  Country: None (occurrence: None)
  Receive Date: 20070629
  Receipt Date: 20070620
  Transmission Date: 20071010
  Serious: Yes (Other)
  Sender: FDA-Public Use
  Company Number: US-GENENTECH-242800

PATIENT
  Sex: Male
  Weight: 105.2 kg

DRUGS (3)
  1. SOMATROPIN [Suspect]
     Indication: CRANIOPHARYNGIOMA
     Dosage: 4.4 MG, QD
     Route: 058
     Dates: start: 20061027, end: 20070524
  2. ADDERALL 10 [Concomitant]
     Indication: DRUG USE FOR UNKNOWN INDICATION
     Dosage: 15 MG, QD
     Route: 048
  3. CLONIDINE [Concomitant]
     Indication: DRUG USE FOR UNKNOWN INDICATION
     Dosage: 1 MG, QHS
     Route: 048

REACTIONS (1)
  - CRANIOPHARYNGIOMA [None]
